FAERS Safety Report 14127836 (Version 2)
Quarter: 2018Q4

REPORT INFORMATION
  Report Type: Spontaneous
  Country: US (occurrence: US)
  Receive Date: 20171026
  Receipt Date: 20181205
  Transmission Date: 20190204
  Serious: No
  Sender: FDA-Public Use
  Company Number: US-PFIZER INC-2017458594

PATIENT
  Age: 73 Year
  Sex: Female
  Weight: 100 kg

DRUGS (12)
  1. SIMVASTATIN ARROW [Concomitant]
     Active Substance: SIMVASTATIN
     Indication: BLOOD CHOLESTEROL INCREASED
     Dosage: 40 MG, 1X/DAY
     Route: 048
  2. IBRANCE [Suspect]
     Active Substance: PALBOCICLIB
     Indication: BREAST CANCER METASTATIC
     Dosage: 100 MG, CYCLIC (100MG ONCE A DAY BY MOUTH FOR 21 DAYS THEN OFF 7 DAYS)
     Route: 048
     Dates: start: 20170921
  3. METOPROLOL. [Concomitant]
     Active Substance: METOPROLOL
     Indication: HYPERTENSION
     Dosage: 50 MG, 1X/DAY
     Route: 048
  4. ZOMETA [Concomitant]
     Active Substance: ZOLEDRONIC ACID
     Indication: CHEMOTHERAPY
     Dosage: 4 MG (EVERY 3 MONTHS BY IV INFUSION)
     Route: 041
  5. IBRANCE [Suspect]
     Active Substance: PALBOCICLIB
     Dosage: 75 MG, UNK
  6. CALCIUM PLUS D3 [Concomitant]
     Indication: BONE LOSS
  7. FASLODEX [Concomitant]
     Active Substance: FULVESTRANT
     Indication: CHEMOTHERAPY
     Dosage: UNK (2 INJECTIONS ONCE A MONTH BY INTRAMSUCULAR INJECTION)
     Route: 030
  8. LASIX [Concomitant]
     Active Substance: FUROSEMIDE
     Indication: FLUID RETENTION
     Dosage: 20 MG, AS NEEDED(20MG 1 TABLET AS NEEDED MONDAY WEDNESDAY FRIDAY)
     Route: 048
  9. AMLODIPINE [Concomitant]
     Active Substance: AMLODIPINE BESYLATE
     Indication: HYPERTENSION
     Dosage: 5 MG, 1X/DAY
     Route: 048
  10. CALCIUM PLUS D3 [Concomitant]
     Indication: BONE CANCER
     Dosage: 600 MG, 1X/DAY
     Route: 048
  11. HERCEPTIN [Concomitant]
     Active Substance: TRASTUZUMAB
     Indication: CHEMOTHERAPY
     Dosage: 8 MG, (ONCE A MONTH BY IV INFUSION)
     Route: 041
  12. LOSARTAN. [Concomitant]
     Active Substance: LOSARTAN
     Indication: HYPERTENSION
     Dosage: 100 MG, 1X/DAY
     Route: 048

REACTIONS (3)
  - Neoplasm progression [Unknown]
  - White blood cell count decreased [Not Recovered/Not Resolved]
  - Red blood cell count decreased [Not Recovered/Not Resolved]

NARRATIVE: CASE EVENT DATE: 20171019
